FAERS Safety Report 26066868 (Version 2)
Quarter: 2025Q4

REPORT INFORMATION
  Report Type: Spontaneous
  Country: US (occurrence: US)
  Receive Date: 20251119
  Receipt Date: 20251125
  Transmission Date: 20260118
  Serious: No
  Sender: SANOFI AVENTIS
  Company Number: US-SA-2025SA344678

PATIENT
  Age: 82 Year
  Sex: Female
  Weight: 78.18 kg

DRUGS (9)
  1. DUPIXENT [Suspect]
     Active Substance: DUPILUMAB
     Indication: Dermatitis atopic
     Dosage: 300 MG, QOW
     Route: 058
  2. LOSARTAN POTASSIUM [Concomitant]
     Active Substance: LOSARTAN POTASSIUM
  3. LEVOTHYROXINE [Concomitant]
     Active Substance: LEVOTHYROXINE
  4. EZETIMIBE [Concomitant]
     Active Substance: EZETIMIBE
  5. CARVEDILOL [Concomitant]
     Active Substance: CARVEDILOL
  6. HYDROXYCHLOROQUINE [Concomitant]
     Active Substance: HYDROXYCHLOROQUINE
  7. FAMOTIDINE [Concomitant]
     Active Substance: FAMOTIDINE
  8. BUPROPION HYDROCHLORIDE [Concomitant]
     Active Substance: BUPROPION HYDROCHLORIDE
  9. PREDNISONE [Concomitant]
     Active Substance: PREDNISONE

REACTIONS (2)
  - Upper respiratory tract infection [Unknown]
  - Respiratory tract congestion [Not Recovered/Not Resolved]

NARRATIVE: CASE EVENT DATE: 20251101
